FAERS Safety Report 9110142 (Version 2)
Quarter: 2013Q1

REPORT INFORMATION
  Report Type: Report from Study
  Country: US (occurrence: US)
  Receive Date: 20130222
  Receipt Date: 20130328
  Transmission Date: 20140127
  Serious: Yes (Life-Threatening)
  Sender: FDA-Public Use
  Company Number: US-ROCHE-1193796

PATIENT
  Sex: Female
  Weight: 129.3 kg

DRUGS (5)
  1. ACTEMRA [Suspect]
     Indication: RHEUMATOID ARTHRITIS
     Dosage: MONTHLY DOSE: 245 MG
     Route: 042
     Dates: start: 20101215
  2. ACTEMRA [Suspect]
     Route: 042
     Dates: start: 20120909
  3. ACTEMRA [Suspect]
     Route: 042
     Dates: start: 20121019
  4. ACTEMRA [Suspect]
     Route: 042
     Dates: start: 20121205
  5. ACTEMRA [Suspect]
     Route: 042
     Dates: start: 20130206

REACTIONS (1)
  - Cervix carcinoma [Not Recovered/Not Resolved]
